FAERS Safety Report 22366449 (Version 9)
Quarter: 2024Q1

REPORT INFORMATION
  Report Type: Spontaneous
  Country: US (occurrence: US)
  Receive Date: 20230525
  Receipt Date: 20240212
  Transmission Date: 20240410
  Serious: No
  Sender: FDA-Public Use
  Company Number: US-PFIZER INC-PV202200070304

PATIENT
  Age: 76 Year
  Sex: Female
  Weight: 108.39 kg

DRUGS (5)
  1. RETACRIT [Suspect]
     Active Substance: EPOETIN ALFA-EPBX
     Indication: Haemoglobin decreased
     Dosage: 20000 IU, AS NEEDED (X1 TODAY)
     Route: 058
  2. RETACRIT [Suspect]
     Active Substance: EPOETIN ALFA-EPBX
     Indication: Chronic kidney disease
     Dosage: 40000 IU, MONTHLY (EVERY 4 WEEKS, AS NEEDED FOR HGB LESS THAN 10G/DL)
     Route: 058
     Dates: start: 202105
  3. RETACRIT [Suspect]
     Active Substance: EPOETIN ALFA-EPBX
     Indication: Anaemia
     Dosage: 10000 IU, 4 DOSES EVERY 4 WEEKS IF HGB LESS THAN 10
     Route: 058
  4. RETACRIT [Suspect]
     Active Substance: EPOETIN ALFA-EPBX
     Dosage: 40000 IU, AS NEEDED (TODAY AND CONTINUE EVERY 4 WEEKS IF HGB{10)
     Route: 058
  5. RETACRIT [Suspect]
     Active Substance: EPOETIN ALFA-EPBX
     Dosage: 40000 U/ML EVERY 4 WEEKS

REACTIONS (2)
  - Illness [Unknown]
  - Off label use [Unknown]
